FAERS Safety Report 5758031-5 (Version None)
Quarter: 2008Q2

REPORT INFORMATION
  Report Type: 
  Country: None (occurrence: None)
  Receive Date: 20080530
  Receipt Date: 20080514
  Transmission Date: 20081010
  Serious: Yes (Hospitalization)
  Sender: FDA-Public Use
  Company Number: 2008PV034157

PATIENT
  Age: 70 Year
  Sex: Female

DRUGS (6)
  1. SYMLIN [Suspect]
     Indication: TYPE 2 DIABETES MELLITUS
     Dosage: 60 MCG;TID;SC
     Route: 058
     Dates: start: 20060101
  2. IRON [Concomitant]
  3. DIOVAN HCT [Concomitant]
  4. VERELAN [Concomitant]
  5. LANTUS [Concomitant]
  6. HUMALOG [Concomitant]

REACTIONS (4)
  - DRUG ADMINISTRATION ERROR [None]
  - MEDICATION ERROR [None]
  - OSTEOARTHRITIS [None]
  - SPINAL COLUMN STENOSIS [None]
